FAERS Safety Report 8757807 (Version 1)
Quarter: 2012Q4

REPORT INFORMATION
  Report Type: Report from Study
  Country: GB (occurrence: GB)
  Receive Date: 20120828
  Receipt Date: 20120828
  Transmission Date: 20130627
  Serious: Yes (Hospitalization)
  Sender: FDA-Public Use
  Company Number: GB-JNJFOC-20120811277

PATIENT
  Age: 72 Year
  Sex: Female

DRUGS (13)
  1. REMICADE [Suspect]
     Indication: RHEUMATOID ARTHRITIS
     Route: 042
     Dates: start: 20050809
  2. OTHER BIOLOGICS [Concomitant]
     Indication: RHEUMATOID ARTHRITIS
  3. METHOTREXATE [Concomitant]
     Indication: RHEUMATOID ARTHRITIS
  4. LEFLUNOMIDE [Concomitant]
     Indication: RHEUMATOID ARTHRITIS
  5. NABUMETONE [Concomitant]
     Route: 048
  6. AMITRIPTYLINE [Concomitant]
     Route: 048
  7. FOLIC ACID [Concomitant]
     Route: 048
  8. OMEPRAZOLE [Concomitant]
     Route: 048
  9. MORPHINE [Concomitant]
  10. ALENDRONIC ACID [Concomitant]
  11. PARACETAMOL [Concomitant]
     Route: 048
  12. ENSURE [Concomitant]
  13. ADALIMUMAB [Concomitant]

REACTIONS (1)
  - Gastric cancer [Unknown]
